FAERS Safety Report 5102800-1 (Version None)
Quarter: 2006Q3

REPORT INFORMATION
  Report Type: 
  Country: None (occurrence: None)
  Receive Date: 20060907
  Receipt Date: 20060829
  Transmission Date: 20061208
  Serious: Yes (Other)
  Sender: FDA-Public Use
  Company Number: 2006105729

PATIENT
  Sex: Female

DRUGS (2)
  1. XALATAN [Suspect]
     Indication: GLAUCOMA
     Dosage: TOPICAL
     Route: 061
  2. DICLOFENAC SODIUM [Concomitant]

REACTIONS (2)
  - MACULAR DEGENERATION [None]
  - MACULAR OEDEMA [None]
